FAERS Safety Report 9361967 (Version 4)
Quarter: 2014Q2

REPORT INFORMATION
  Report Type: Spontaneous
  Country: PR (occurrence: PR)
  Receive Date: 20130621
  Receipt Date: 20140521
  Transmission Date: 20141212
  Serious: Yes (Hospitalization, Other)
  Sender: FDA-Public Use
  Company Number: US-MERCK-1306USA009014

PATIENT
  Sex: Female
  Weight: 82.54 kg

DRUGS (5)
  1. FOSAMAX [Suspect]
     Indication: SENILE OSTEOPOROSIS
     Dosage: 70 MG, QW
     Route: 048
     Dates: start: 20011023, end: 20100730
  2. FOSAMAX [Suspect]
     Indication: OSTEOPENIA
  3. ALENDRONATE SODIUM [Suspect]
     Dosage: 70 MG, UNK
     Route: 048
     Dates: start: 2008, end: 2010
  4. PLAQUENIL [Concomitant]
     Indication: ARTHRITIS
     Dosage: UNK
     Dates: start: 2002
  5. PREDNISONE [Concomitant]
     Indication: ARTHRITIS
     Dosage: UNK
     Dates: start: 2002

REACTIONS (15)
  - Femur fracture [Recovered/Resolved]
  - Lymphoma [Unknown]
  - Intramedullary rod insertion [Unknown]
  - Low turnover osteopathy [Unknown]
  - Essential hypertension [Not Recovered/Not Resolved]
  - Tumour excision [Unknown]
  - Cataract operation [Unknown]
  - Fall [Unknown]
  - Mucosal dryness [Unknown]
  - Dry eye [Unknown]
  - Cataract [Unknown]
  - Blood cholesterol [Not Recovered/Not Resolved]
  - Osteoarthritis [Unknown]
  - Coronary artery disease [Unknown]
  - Insomnia [Unknown]
